FAERS Safety Report 24400349 (Version 1)
Quarter: 2024Q4

REPORT INFORMATION
  Report Type: Spontaneous
  Country: US (occurrence: US)
  Receive Date: 20241005
  Receipt Date: 20241005
  Transmission Date: 20250115
  Serious: Yes (Hospitalization)
  Sender: MERCK
  Company Number: US-009507513-2410USA000831

PATIENT
  Age: 43 Year
  Sex: Male

DRUGS (1)
  1. INVANZ [Suspect]
     Active Substance: ERTAPENEM SODIUM
     Indication: Campylobacter bacteraemia
     Dosage: UNK

REACTIONS (3)
  - Pathogen resistance [Unknown]
  - Abdominal discomfort [Recovering/Resolving]
  - Product use in unapproved indication [Unknown]
